FAERS Safety Report 9530398 (Version 1)
Quarter: 2013Q3

REPORT INFORMATION
  Report Type: Spontaneous
  Country: US (occurrence: US)
  Receive Date: 20130918
  Receipt Date: 20130918
  Transmission Date: 20140515
  Serious: Yes (Other)
  Sender: FDA-Public Use
  Company Number: US-AMGEN-USASP2013063996

PATIENT
  Sex: Male

DRUGS (3)
  1. VECTIBIX [Suspect]
     Indication: COLON CANCER STAGE IV
     Dosage: UNK
     Route: 065
     Dates: start: 201302
  2. IRINOTECAN [Concomitant]
     Indication: COLON CANCER STAGE IV
     Dosage: UNK
  3. MINOCYCLINE [Concomitant]
     Indication: PROPHYLAXIS
     Dosage: 100 MG, TWICE DAILY

REACTIONS (8)
  - Metastases to lymph nodes [Unknown]
  - Skin irritation [Unknown]
  - Skin burning sensation [Unknown]
  - Feeling hot [Unknown]
  - Skin reaction [Unknown]
  - Rash [Unknown]
  - Acne [Unknown]
  - Skin toxicity [Unknown]
